FAERS Safety Report 5831665-5 (Version None)
Quarter: 2008Q3

REPORT INFORMATION
  Report Type: 
  Country: None (occurrence: None)
  Receive Date: 20080730
  Receipt Date: 20080715
  Transmission Date: 20090109
  Serious: Yes (Hospitalization)
  Sender: FDA-Public Use
  Company Number: 8034864

PATIENT
  Age: 16 Year
  Sex: Male
  Weight: 70.9 kg

DRUGS (2)
  1. KEPPRA [Suspect]
     Indication: CONVULSION
     Dosage: 1500 MG 2/D PO
     Route: 048
     Dates: start: 20070710
  2. VALPROIC ACID /0028502/ [Concomitant]

REACTIONS (2)
  - DISEASE RECURRENCE [None]
  - PERICARDITIS [None]
